FAERS Safety Report 9159408 (Version 2)
Quarter: 2013Q2

REPORT INFORMATION
  Report Type: Spontaneous
  Country: BR (occurrence: BR)
  Receive Date: 20130313
  Receipt Date: 20130515
  Transmission Date: 20140414
  Serious: Yes (Life-Threatening)
  Sender: FDA-Public Use
  Company Number: PHHY2013BR023766

PATIENT
  Sex: Male

DRUGS (7)
  1. TEGRETOL CR [Suspect]
     Dosage: 2 DF, DAILY
     Route: 048
  2. TEGRETOL CR [Suspect]
     Dosage: 2 DF, DAILY
     Route: 048
  3. VENLAFAXINE HYDROCHLORIDE [Concomitant]
     Dosage: 1 DF, DAILY
  4. MAREVAN [Concomitant]
     Indication: COAGULOPATHY
     Dosage: 2 DF (7.5 MG), ON THURSDAY, SATURDAY AND SUNDAY
  5. MAREVAN [Concomitant]
     Dosage: 10 MG, ON MONDAT, WEDNESDAY AND FRIDAY
  6. CRESTOR [Concomitant]
     Indication: BLOOD CHOLESTEROL INCREASED
     Dosage: 1 DF, DAILY
  7. ZETIA [Concomitant]
     Indication: BLOOD CHOLESTEROL INCREASED
     Dosage: 1 DF, DAILY

REACTIONS (1)
  - Feeling abnormal [Recovering/Resolving]
